FAERS Safety Report 23140268 (Version 1)
Quarter: 2023Q4

REPORT INFORMATION
  Report Type: Spontaneous
  Country: US (occurrence: US)
  Receive Date: 20231102
  Receipt Date: 20231102
  Transmission Date: 20240110
  Serious: Yes (Other)
  Sender: FDA-Public Use
  Company Number: US-BIOGEN-2023BI01233916

PATIENT
  Age: 57 Year
  Sex: Female

DRUGS (4)
  1. AVONEX PEN [Suspect]
     Active Substance: INTERFERON BETA-1A
     Indication: Multiple sclerosis
     Route: 050
     Dates: start: 20230922
  2. AVONEX PEN [Suspect]
     Active Substance: INTERFERON BETA-1A
  3. AVONEX PEN [Suspect]
     Active Substance: INTERFERON BETA-1A
  4. AVONEX PEN [Suspect]
     Active Substance: INTERFERON BETA-1A

REACTIONS (6)
  - Pelvic fracture [Not Recovered/Not Resolved]
  - Hip fracture [Not Recovered/Not Resolved]
  - Wrist fracture [Not Recovered/Not Resolved]
  - Road traffic accident [Recovered/Resolved]
  - Ligament sprain [Not Recovered/Not Resolved]
  - Skin laceration [Not Recovered/Not Resolved]

NARRATIVE: CASE EVENT DATE: 20231020
